FAERS Safety Report 9181861 (Version 1)
Quarter: 2013Q1

REPORT INFORMATION
  Report Type: Spontaneous
  Country: ES (occurrence: ES)
  Receive Date: 20130322
  Receipt Date: 20130322
  Transmission Date: 20140127
  Serious: Yes (Hospitalization, Other)
  Sender: FDA-Public Use
  Company Number: ES-ELI_LILLY_AND_COMPANY-ES201303005188

PATIENT
  Age: 74 None
  Sex: Female

DRUGS (1)
  1. FORSTEO [Suspect]
     Dosage: UNK, UNKNOWN
     Route: 065
     Dates: start: 20090801

REACTIONS (6)
  - Bone cancer [Unknown]
  - Haemorrhage [Unknown]
  - Terminal state [Unknown]
  - General physical health deterioration [Unknown]
  - Bone pain [Unknown]
  - Dysstasia [Unknown]
